FAERS Safety Report 17203041 (Version 2)
Quarter: 2019Q4

REPORT INFORMATION
  Report Type: Report from Study
  Country: AT (occurrence: AT)
  Receive Date: 20191226
  Receipt Date: 20191230
  Transmission Date: 20200122
  Serious: Yes (Other)
  Sender: FDA-Public Use
  Company Number: AT-EISAI MEDICAL RESEARCH-EC-2019-066433

PATIENT
  Age: 67 Year
  Sex: Female
  Weight: 62.7 kg

DRUGS (4)
  1. THYREX [Concomitant]
     Active Substance: LEVOTHYROXINE SODIUM
  2. HALAVEN [Suspect]
     Active Substance: ERIBULIN MESYLATE
     Indication: BREAST CANCER
     Route: 041
     Dates: start: 20190903, end: 20191126
  3. LOVENOX [Concomitant]
     Active Substance: ENOXAPARIN SODIUM
  4. LOSARTAN. [Concomitant]
     Active Substance: LOSARTAN

REACTIONS (1)
  - Cardiac failure [Not Recovered/Not Resolved]

NARRATIVE: CASE EVENT DATE: 20191126
